FAERS Safety Report 15119984 (Version 1)
Quarter: 2018Q3

REPORT INFORMATION
  Report Type: Spontaneous
  Country: PT (occurrence: PT)
  Receive Date: 20180709
  Receipt Date: 20180709
  Transmission Date: 20181010
  Serious: Yes (Other)
  Sender: FDA-Public Use
  Company Number: PT-BAYER-2018-124888

PATIENT
  Age: 49 Year
  Sex: Female

DRUGS (2)
  1. BEVACIZUMAB. [Concomitant]
     Active Substance: BEVACIZUMAB
     Dosage: 3 MONTHLY INJECTIONS
  2. ACETYLSALICYLIC ACID (} 100 MG) [Suspect]
     Active Substance: ASPIRIN
     Indication: BLINDNESS UNILATERAL
     Dosage: 150 MG, QD

REACTIONS (4)
  - Retinal artery occlusion [None]
  - Blindness unilateral [None]
  - Retinal vein occlusion [None]
  - Retinal haemorrhage [Recovered/Resolved]
